FAERS Safety Report 7919480-X (Version None)
Quarter: 2011Q4

REPORT INFORMATION
  Report Type: 
  Country: None (occurrence: None)
  Receive Date: 20111117
  Receipt Date: 20111115
  Transmission Date: 20120403
  Serious: No
  Sender: FDA-Public Use
  Company Number: US-PFIZER INC-2011280502

PATIENT
  Sex: Female
  Weight: 55.3 kg

DRUGS (10)
  1. ALAVERT [Suspect]
     Indication: HEADACHE
  2. ACETAMINOPHEN [Concomitant]
     Indication: HEADACHE
  3. ALAVERT [Suspect]
     Indication: SNEEZING
  4. AMLODIPINE [Concomitant]
     Indication: HYPERTENSION
     Dosage: 10 MG, DAILY
  5. ACETAMINOPHEN [Concomitant]
     Indication: SNEEZING
  6. ACETAMINOPHEN [Concomitant]
     Indication: OROPHARYNGEAL PAIN
     Dosage: UNK
  7. ACETAMINOPHEN [Concomitant]
     Indication: RHINORRHOEA
  8. ALAVERT [Suspect]
     Indication: OROPHARYNGEAL PAIN
     Dosage: 10 MG, UNK
     Route: 048
     Dates: end: 20111108
  9. LISINOPRIL AND HYDROCHLOROTHIAZIDE [Concomitant]
     Indication: HYPERTENSION
     Dosage: 20/25 MG, DAILY
  10. ALAVERT [Suspect]
     Indication: RHINORRHOEA

REACTIONS (4)
  - TREMOR [None]
  - PAIN [None]
  - REFLUX GASTRITIS [None]
  - ABDOMINAL DISCOMFORT [None]
